FAERS Safety Report 5755941-X (Version None)
Quarter: 2008Q2

REPORT INFORMATION
  Report Type: 
  Country: None (occurrence: None)
  Receive Date: 20080602
  Receipt Date: 20080528
  Transmission Date: 20081010
  Serious: Yes (Other)
  Sender: FDA-Public Use
  Company Number: DE-ASTRAZENECA-2008AC01367

PATIENT
  Age: 21 Year
  Sex: Female
  Weight: 65 kg

DRUGS (4)
  1. DISOPRIVAN [Suspect]
     Indication: SEDATION
     Route: 042
  2. DISOPRIVAN [Suspect]
     Route: 042
  3. SUFENTANIL CITRATE [Concomitant]
     Indication: SEDATION
  4. NOREPINEPHRINE [Concomitant]
     Indication: PROPHYLAXIS
     Dosage: 0.005-0.1 UG/KG/MIN

REACTIONS (1)
  - PROPOFOL INFUSION SYNDROME [None]
